FAERS Safety Report 18991915 (Version 1)
Quarter: 2021Q1

REPORT INFORMATION
  Report Type: Spontaneous
  Country: DE (occurrence: DE)
  Receive Date: 20210310
  Receipt Date: 20210310
  Transmission Date: 20210420
  Serious: Yes (Other)
  Sender: FDA-Public Use
  Company Number: DE-DSJP-DSE-2021-106725

PATIENT
  Sex: Female

DRUGS (1)
  1. SEVIKAR [Suspect]
     Active Substance: AMLODIPINE BESYLATE\OLMESARTAN MEDOXOMIL
     Indication: PRODUCT USED FOR UNKNOWN INDICATION
     Dosage: UNK

REACTIONS (20)
  - Diplopia [Unknown]
  - Tinnitus [Unknown]
  - Arthralgia [Unknown]
  - Hypoaesthesia [Unknown]
  - Flushing [Unknown]
  - Nocturia [Unknown]
  - Musculoskeletal stiffness [Unknown]
  - Gait disturbance [Unknown]
  - Peripheral swelling [Unknown]
  - Asthenia [Unknown]
  - Tremor [Unknown]
  - Muscle tightness [Unknown]
  - Bradykinesia [Unknown]
  - Fatigue [Unknown]
  - Blood uric acid increased [Unknown]
  - Ocular discomfort [Unknown]
  - Muscle disorder [Unknown]
  - Reduced facial expression [Unknown]
  - Dizziness [Unknown]
  - Myalgia [Unknown]
